FAERS Safety Report 15107086 (Version 2)
Quarter: 2018Q3

REPORT INFORMATION
  Report Type: Report from Study
  Country: US (occurrence: US)
  Receive Date: 20180704
  Receipt Date: 20180715
  Transmission Date: 20181010
  Serious: Yes (Other)
  Sender: FDA-Public Use
  Company Number: US-AMAG PHARMACEUTICALS, INC.-AMAG201803242

PATIENT
  Age: 34 Year
  Sex: Female

DRUGS (1)
  1. MAKENA [Suspect]
     Active Substance: HYDROXYPROGESTERONE CAPROATE
     Indication: PREMATURE DELIVERY
     Dosage: 250 MG/ML, WEEKLY
     Route: 058
     Dates: start: 20180611

REACTIONS (5)
  - Dizziness [Unknown]
  - Loss of consciousness [Unknown]
  - Feeling hot [Unknown]
  - Limb discomfort [Unknown]
  - Injection site pain [Unknown]

NARRATIVE: CASE EVENT DATE: 20180625
